FAERS Safety Report 6752403-8 (Version None)
Quarter: 2010Q2

REPORT INFORMATION
  Report Type: 
  Country: None (occurrence: None)
  Receive Date: 20100601
  Receipt Date: 20100601
  Transmission Date: 20101027
  Serious: Yes (Other)
  Sender: FDA-Public Use
  Company Number: None

PATIENT
  Age: 47 Year
  Sex: Female
  Weight: 94.3482 kg

DRUGS (1)
  1. VENLAFAXINE HCL EXTENDED-RELEASE [Suspect]
     Indication: MAJOR DEPRESSION
     Dosage: 225MG ONCE PER DAY PO
     Route: 048
     Dates: start: 20100227, end: 20100527

REACTIONS (8)
  - COGNITIVE DISORDER [None]
  - FATIGUE [None]
  - MALAISE [None]
  - MEDICATION RESIDUE [None]
  - MIGRAINE [None]
  - PRODUCT SUBSTITUTION ISSUE [None]
  - SPEECH DISORDER [None]
  - WITHDRAWAL SYNDROME [None]
